FAERS Safety Report 5257712-X (Version None)
Quarter: 2007Q1

REPORT INFORMATION
  Report Type: 
  Country: None (occurrence: None)
  Receive Date: 20070307
  Receipt Date: 20070227
  Transmission Date: 20070707
  Serious: Yes (Other)
  Sender: FDA-Public Use
  Company Number: IE-JNJFOC-20070300172

PATIENT
  Sex: Male

DRUGS (1)
  1. LEUSTAT [Suspect]
     Indication: DRUG USE FOR UNKNOWN INDICATION

REACTIONS (2)
  - INCORRECT DRUG ADMINISTRATION RATE [None]
  - LOSS OF CONSCIOUSNESS [None]
